FAERS Safety Report 9710855 (Version 1)
Quarter: 2013Q4

REPORT INFORMATION
  Report Type: Spontaneous
  Country: US (occurrence: US)
  Receive Date: 20131126
  Receipt Date: 20131126
  Transmission Date: 20140711
  Serious: No
  Sender: FDA-Public Use
  Company Number: US-BRISTOL-MYERS SQUIBB COMPANY-19026020

PATIENT
  Age: 52 Year
  Sex: Female

DRUGS (6)
  1. BYDUREON [Suspect]
  2. METFORMIN [Concomitant]
  3. LEVEMIR [Concomitant]
  4. SYNTHROID [Concomitant]
  5. LISINOPRIL [Concomitant]
  6. PRAVASTATIN SODIUM [Concomitant]

REACTIONS (1)
  - Injection site nodule [Not Recovered/Not Resolved]
